FAERS Safety Report 21237028 (Version 3)
Quarter: 2022Q3

REPORT INFORMATION
  Report Type: Spontaneous
  Country: GR (occurrence: GR)
  Receive Date: 20220822
  Receipt Date: 20220928
  Transmission Date: 20221027
  Serious: Yes (Other)
  Sender: FDA-Public Use
  Company Number: GR-DENTSPLY-2022SCDP000237

PATIENT
  Age: 4 Decade
  Sex: Female
  Weight: 75 kg

DRUGS (2)
  1. MEPIVACAINE [Suspect]
     Active Substance: MEPIVACAINE HYDROCHLORIDE
     Indication: Jaw operation
     Dosage: 1 DOSAGE FORM OF 3 % MEPIVACAINE (30 MG/ML ONE AMPOULE OF 1.8 ML) (MANDIBULAR NERVE BLOCK)
     Route: 004
  2. ARTICAINE HYDROCHLORIDE\EPINEPHRINE HYDROCHLORIDE [Suspect]
     Active Substance: ARTICAINE HYDROCHLORIDE\EPINEPHRINE HYDROCHLORIDE
     Indication: Nerve block
     Dosage: 1 DOSAGE FORM (ONE AMPOULE OF 1.7 ML) (MANDIBULAR NERVE BLOCK) ARTICAINE 4% PLUS EPINEPHRINE ADMINIS
     Route: 004

REACTIONS (8)
  - Glossopharyngeal nerve paralysis [Recovered/Resolved]
  - Vagus nerve paralysis [Recovered/Resolved]
  - Dysphagia [Recovered/Resolved]
  - Dysphonia [Recovered/Resolved]
  - Uvula deviation [Recovered/Resolved]
  - Hypoaesthesia [Recovered/Resolved]
  - Drug ineffective [Unknown]
  - Therapeutic product effect incomplete [Unknown]
